FAERS Safety Report 13192358 (Version 2)
Quarter: 2017Q1

REPORT INFORMATION
  Report Type: Spontaneous
  Country: MX (occurrence: MX)
  Receive Date: 20170207
  Receipt Date: 20170217
  Transmission Date: 20170428
  Serious: Yes (Hospitalization)
  Sender: FDA-Public Use
  Company Number: PHHY2017MX016415

PATIENT
  Age: 24 Year
  Sex: Female

DRUGS (1)
  1. GILENYA [Suspect]
     Active Substance: FINGOLIMOD HYDROCHLORIDE
     Indication: PRODUCT USED FOR UNKNOWN INDICATION
     Route: 065

REACTIONS (8)
  - Muscular weakness [Recovering/Resolving]
  - Dysaesthesia [Unknown]
  - Peripheral nerve lesion [Recovered/Resolved]
  - Maternal exposure during pregnancy [Unknown]
  - Limb discomfort [Recovered/Resolved]
  - Multiple sclerosis relapse [Unknown]
  - Motor dysfunction [Unknown]
  - Paraesthesia [Unknown]
